FAERS Safety Report 10957194 (Version 2)
Quarter: 2015Q2

REPORT INFORMATION
  Report Type: Spontaneous
  Country: ES (occurrence: None)
  Receive Date: 20150324
  Receipt Date: 20150406
  Transmission Date: 20150821
  Serious: Yes (Hospitalization)
  Sender: FDA-Public Use
  Company Number: TPU2015-00111

PATIENT
  Age: 84 Year
  Sex: Female

DRUGS (1)
  1. VERSATIS [Suspect]
     Active Substance: LIDOCAINE
     Indication: PRODUCT USED FOR UNKNOWN INDICATION
     Route: 061
     Dates: start: 20150216, end: 20150225

REACTIONS (2)
  - Dizziness [None]
  - Muscular weakness [None]

NARRATIVE: CASE EVENT DATE: 20150218
